FAERS Safety Report 9973927 (Version 1)
Quarter: 2014Q1

REPORT INFORMATION
  Report Type: Report from Study
  Country: US (occurrence: US)
  Receive Date: 20140306
  Receipt Date: 20140306
  Transmission Date: 20141002
  Serious: No
  Sender: FDA-Public Use
  Company Number: US-ABBVIE-13P-163-1159510-00

PATIENT
  Age: 34 Year
  Sex: Female

DRUGS (8)
  1. HUMIRA [Suspect]
     Indication: CROHN^S DISEASE
     Dates: start: 20131002
  2. ASACOL [Concomitant]
     Indication: CROHN^S DISEASE
     Route: 048
  3. IRON [Concomitant]
     Indication: BLOOD IRON DECREASED
  4. PRENATAL MULTIVITAMIN + DHA [Concomitant]
     Indication: VITAMIN SUPPLEMENTATION
     Route: 048
  5. PREDNISOLONE [Concomitant]
     Indication: HYPERSENSITIVITY
     Dosage: 4 GTTS TO EACH EYE DAILY
  6. PROTONIX [Concomitant]
     Indication: GASTROOESOPHAGEAL REFLUX DISEASE
     Dosage: 20 MG DAILY
     Route: 048
  7. ULTRAM [Concomitant]
     Indication: PAIN
     Dosage: 50 MG DAILY
     Route: 048
  8. VICODIN [Concomitant]
     Indication: ABDOMINAL PAIN
     Dosage: 5/300 1 TABLET AT BEDTIME
     Route: 048

REACTIONS (1)
  - Pain in extremity [Recovered/Resolved]
